FAERS Safety Report 8601399-2 (Version None)
Quarter: 2012Q3

REPORT INFORMATION
  Report Type: 
  Country: None (occurrence: None)
  Receive Date: 20120805
  Receipt Date: 20120724
  Transmission Date: 20120928
  Serious: Yes (Other)
  Sender: FDA-Public Use
  Company Number: CIP-2012-00244

PATIENT

DRUGS (2)
  1. TOPOTECAN [Suspect]
     Indication: RETINOBLASTOMA
     Dosage: INTRAVENOUS
     Route: 042
  2. CARBOPLATIN [Suspect]
     Indication: RETINOBLASTOMA
     Dosage: 2 CC (10 MG/1CC) (EVERY 4-6 WEEKS), PERIOCULAR

REACTIONS (1)
  - OPTIC ATROPHY [None]
